FAERS Safety Report 7953171-4 (Version None)
Quarter: 2011Q4

REPORT INFORMATION
  Report Type: 
  Country: None (occurrence: None)
  Receive Date: 20111201
  Receipt Date: 20111128
  Transmission Date: 20120403
  Serious: Yes (Other)
  Sender: FDA-Public Use
  Company Number: BR-ROCHE-1017096

PATIENT
  Age: 50 Year
  Sex: Female
  Weight: 65 kg

DRUGS (3)
  1. DEFLAZACORT [Concomitant]
     Route: 065
  2. MABTHERA [Suspect]
     Indication: RHEUMATOID ARTHRITIS
     Dosage: UNKNOWN
     Route: 042
     Dates: start: 20111101
  3. LEXAPRO [Concomitant]
     Route: 065

REACTIONS (5)
  - PAIN [None]
  - HYPERSENSITIVITY [None]
  - POLYARTHRITIS [None]
  - URTICARIA [None]
  - LARYNGEAL OEDEMA [None]
